FAERS Safety Report 5226156-9 (Version None)
Quarter: 2007Q1

REPORT INFORMATION
  Report Type: 
  Country: None (occurrence: None)
  Receive Date: 20070201
  Receipt Date: 20070122
  Transmission Date: 20070707
  Serious: Yes (Death, Life-Threatening, Other)
  Sender: FDA-Public Use
  Company Number: GB-JNJFOC-20070105911

PATIENT
  Sex: Male
  Weight: 76 kg

DRUGS (11)
  1. REMICADE [Suspect]
     Indication: RHEUMATOID ARTHRITIS
     Route: 042
  2. BISOPROLOL FUMARATE [Concomitant]
     Route: 065
  3. ARTHROTEC [Concomitant]
     Route: 065
  4. SULFASALAZINE [Concomitant]
     Route: 065
  5. METHOTREXATE [Concomitant]
     Route: 065
  6. BECOTIDE [Concomitant]
     Route: 065
  7. BENDROFLUAZIDE [Concomitant]
     Route: 065
  8. CO-PROXAMOL [Concomitant]
     Route: 065
  9. FOLIC ACID [Concomitant]
     Route: 065
  10. HYDROXYCHLOROQUINE SULFATE [Concomitant]
     Route: 065
  11. SALBUTAMOL [Concomitant]
     Route: 065

REACTIONS (3)
  - ACUTE LEFT VENTRICULAR FAILURE [None]
  - ARTERIOSCLEROSIS CORONARY ARTERY [None]
  - MYOCARDIAL ISCHAEMIA [None]
